FAERS Safety Report 26137367 (Version 1)
Quarter: 2025Q4

REPORT INFORMATION
  Report Type: Spontaneous
  Country: US (occurrence: US)
  Receive Date: 20251209
  Receipt Date: 20251209
  Transmission Date: 20260117
  Serious: Yes (Other)
  Sender: PFIZER
  Company Number: US-PFIZER INC-202500235659

PATIENT
  Age: 33 Year
  Sex: Female

DRUGS (2)
  1. DOBUTAMINE HYDROCHLORIDE [Suspect]
     Active Substance: DOBUTAMINE HYDROCHLORIDE
     Indication: Cardiac stress test
     Dosage: UNK
     Route: 065
  2. DEFINITY [Suspect]
     Active Substance: PERFLUTREN
     Dosage: UNK

REACTIONS (2)
  - Hypotension [Unknown]
  - Urticaria [Unknown]
